FAERS Safety Report 20802017 (Version 1)
Quarter: 2022Q2

REPORT INFORMATION
  Report Type: Spontaneous
  Country: US (occurrence: None)
  Receive Date: 20220506
  Receipt Date: 20220506
  Transmission Date: 20220720
  Serious: Yes (Death)
  Sender: FDA-Public Use
  Company Number: None

PATIENT
  Age: 42 Year
  Sex: Male
  Weight: 74.84 kg

DRUGS (14)
  1. IRINOTECAN [Suspect]
     Active Substance: IRINOTECAN
     Indication: Rectal cancer
     Dosage: FREQUENCY : EVERY OTHER WEEK;?
     Route: 042
  2. DEXAMETHASONE SODIUM PHOSPHATE [Suspect]
     Active Substance: DEXAMETHASONE SODIUM PHOSPHATE
     Indication: Rectal cancer
     Dosage: FREQUENCY : EVERY OTHER WEEK;?
     Route: 042
  3. ATROPINE [Suspect]
     Active Substance: ATROPINE
  4. FLUOROURACIL [Suspect]
     Active Substance: FLUOROURACIL
  5. LEUCOVORIN [Suspect]
     Active Substance: LEUCOVORIN
  6. BACLOFEN [Concomitant]
     Active Substance: BACLOFEN
  7. CLONAZEPAM [Concomitant]
     Active Substance: CLONAZEPAM
  8. LISINOPRIL [Concomitant]
     Active Substance: LISINOPRIL
  9. LORATADINE [Concomitant]
     Active Substance: LORATADINE
  10. METFORMIN HYDROCHLORIDE [Concomitant]
     Active Substance: METFORMIN HYDROCHLORIDE
  11. MORPHINE SULFATE [Concomitant]
     Active Substance: MORPHINE SULFATE
  12. OXYCODONE HYDROCHLORIDE [Concomitant]
     Active Substance: OXYCODONE HYDROCHLORIDE
  13. VANCOMYCIN HYDROCHLORIDE [Concomitant]
     Active Substance: VANCOMYCIN HYDROCHLORIDE
  14. ZOLPIDEM TARTRATE [Concomitant]
     Active Substance: ZOLPIDEM TARTRATE

REACTIONS (1)
  - Death [None]
